FAERS Safety Report 7085290-1 (Version None)
Quarter: 2010Q4

REPORT INFORMATION
  Report Type: 
  Country: None (occurrence: None)
  Receive Date: 20101105
  Receipt Date: 20101027
  Transmission Date: 20110411
  Serious: Yes (Other)
  Sender: FDA-Public Use
  Company Number: BR-PFIZER INC-2010136661

PATIENT
  Age: 34 Year
  Sex: Female
  Weight: 60 kg

DRUGS (6)
  1. LYRICA [Suspect]
     Indication: PAIN IN EXTREMITY
     Dosage: 75 MG EVERY TWELVE HOURS
     Route: 048
     Dates: start: 20101022, end: 20101025
  2. LYRICA [Suspect]
     Indication: BACK PAIN
  3. LYRICA [Suspect]
     Indication: NECK PAIN
  4. CELEBRA [Suspect]
     Indication: PAIN IN EXTREMITY
     Dosage: 200 MG EVERY 12 HOURS
     Route: 048
  5. CELEBRA [Suspect]
     Indication: BACK PAIN
  6. CELEBRA [Suspect]
     Indication: NECK PAIN

REACTIONS (5)
  - DAYDREAMING [None]
  - DISORIENTATION [None]
  - DIZZINESS [None]
  - DYSARTHRIA [None]
  - HYPOAESTHESIA ORAL [None]
